FAERS Safety Report 13276130 (Version 1)
Quarter: 2017Q1

REPORT INFORMATION
  Report Type: Report from Study
  Country: IL (occurrence: IL)
  Receive Date: 20170228
  Receipt Date: 20170228
  Transmission Date: 20170428
  Serious: Yes (Death, Life-Threatening, Hospitalization, Other)
  Sender: FDA-Public Use
  Company Number: IL-BRISTOL-MYERS SQUIBB COMPANY-BMS-2017-015653

PATIENT
  Age: 94 Year
  Sex: Female
  Weight: 80 kg

DRUGS (4)
  1. APIXABAN [Suspect]
     Active Substance: APIXABAN
     Indication: CEREBROVASCULAR ACCIDENT PROPHYLAXIS
     Dosage: 2.5 MG, DAILY
     Route: 065
     Dates: start: 20160309
  2. FUSID                              /00032601/ [Concomitant]
     Indication: ACUTE KIDNEY INJURY
     Dosage: UNK
     Route: 048
  3. EXFORGE [Concomitant]
     Active Substance: AMLODIPINE BESYLATE\VALSARTAN
     Indication: MYOCARDIAL ISCHAEMIA
     Dosage: UNK
     Route: 048
  4. CARDILOC [Concomitant]
     Active Substance: BISOPROLOL FUMARATE
     Indication: MYOCARDIAL ISCHAEMIA
     Dosage: UNK
     Route: 048

REACTIONS (3)
  - Respiratory failure [Unknown]
  - Prescribed underdose [Unknown]
  - Acute kidney injury [Fatal]

NARRATIVE: CASE EVENT DATE: 20160413
